FAERS Safety Report 4643943-6 (Version None)
Quarter: 2005Q2

REPORT INFORMATION
  Report Type: 
  Country: None (occurrence: None)
  Receive Date: 20050418
  Receipt Date: 20050330
  Transmission Date: 20051028
  Serious: Yes (Other)
  Sender: FDA-Public Use
  Company Number: 602876

PATIENT
  Sex: Male

DRUGS (10)
  1. HEMOFIL [Suspect]
     Indication: HAEMOPHILIA
  2. FACTOR IX COMPLEX [Suspect]
     Indication: HAEMOPHILIA
  3. FACTOR VIII BAYER [Suspect]
     Indication: HAEMOPHILIA
  4. FACTOR IX COMPLEX [Suspect]
     Indication: HAEMOPHILIA
  5. FACTOR VIII (ARMOUR PHARMACEUTICAL) [Suspect]
     Indication: HAEMOPHILIA
  6. FACTOR IX (ARMOUR PHARMACEUTICAL) [Suspect]
     Indication: HAEMOPHILIA
  7. FACTOR VIII (AVENTIS) [Suspect]
     Indication: HAEMOPHILIA
  8. FACTOR IX COMPLEX [Suspect]
     Indication: HAEMOPHILIA
  9. FACTOR VIII (ALPHA THERAPEUTICS) [Suspect]
     Indication: HAEMOPHILIA
  10. FACTOR IX (ALPHA THERAPEUTICS) [Suspect]
     Indication: HAEMOPHILIA

REACTIONS (2)
  - HEPATITIS C VIRUS [None]
  - HIV INFECTION [None]
